FAERS Safety Report 24591364 (Version 3)
Quarter: 2025Q2

REPORT INFORMATION
  Report Type: Spontaneous
  Country: US (occurrence: US)
  Receive Date: 20241108
  Receipt Date: 20250507
  Transmission Date: 20250716
  Serious: Yes (Hospitalization, Other)
  Sender: SANOFI AVENTIS
  Company Number: US-SA-2024SA318274

PATIENT
  Age: 72 Year
  Sex: Male

DRUGS (10)
  1. DUPIXENT [Suspect]
     Active Substance: DUPILUMAB
     Indication: Dermatitis atopic
     Route: 058
     Dates: start: 202310, end: 202310
  2. DUPIXENT [Suspect]
     Active Substance: DUPILUMAB
     Dosage: 300 MG, QOW
     Route: 058
     Dates: start: 2023
  3. VENTOLIN HFA [Concomitant]
     Active Substance: ALBUTEROL SULFATE
  4. AZITHROMYCIN [Concomitant]
     Active Substance: AZITHROMYCIN
  5. ATORVASTATIN [Concomitant]
     Active Substance: ATORVASTATIN
  6. MONTELUKAST [Concomitant]
     Active Substance: MONTELUKAST
  7. FLUTICASONE [Concomitant]
     Active Substance: FLUTICASONE
  8. HYDROCHLOROTHIAZIDE [Concomitant]
     Active Substance: HYDROCHLOROTHIAZIDE
  9. LISINOPRIL [Concomitant]
     Active Substance: LISINOPRIL
  10. VOQUEZNA [Concomitant]
     Active Substance: VONOPRAZAN FUMARATE

REACTIONS (10)
  - Fall [Recovering/Resolving]
  - Loss of consciousness [Recovering/Resolving]
  - Craniofacial fracture [Recovering/Resolving]
  - Hypotension [Not Recovered/Not Resolved]
  - Hypoxia [Not Recovered/Not Resolved]
  - Gait inability [Not Recovered/Not Resolved]
  - Neoplasm malignant [Unknown]
  - Asthma [Not Recovered/Not Resolved]
  - Dehydration [Recovering/Resolving]
  - Sleep disorder due to a general medical condition [Not Recovered/Not Resolved]
